FAERS Safety Report 17607552 (Version 1)
Quarter: 2020Q2

REPORT INFORMATION
  Report Type: Spontaneous
  Country: CZ (occurrence: CZ)
  Receive Date: 20200401
  Receipt Date: 20200401
  Transmission Date: 20200713
  Serious: Yes (Hospitalization, Other)
  Sender: FDA-Public Use
  Company Number: CZ-AUROBINDO-AUR-APL-2020-015970

PATIENT
  Sex: Female

DRUGS (5)
  1. LAMOTRIGINE. [Concomitant]
     Active Substance: LAMOTRIGINE
     Dosage: UNK (DOSE INCREASED)
     Route: 048
  2. LAMOTRIGINE. [Concomitant]
     Active Substance: LAMOTRIGINE
     Indication: DEPRESSION
     Dosage: 4 DOSAGE FORM, ONCE A DAY (2-0-2)
     Route: 048
  3. PAROXETINE. [Suspect]
     Active Substance: PAROXETINE
     Indication: DEPRESSION
     Dosage: UNK
     Route: 065
  4. AMISULPRIDE [Concomitant]
     Active Substance: AMISULPRIDE
     Indication: DEPRESSION
     Dosage: 2 DOSAGE FORM, ONCE A DAY (1-0-1)
     Route: 065
  5. MIRTAZAPINE. [Interacting]
     Active Substance: MIRTAZAPINE
     Indication: DEPRESSION
     Dosage: 1 DOSAGE FORM
     Route: 048

REACTIONS (6)
  - Sedation [Recovering/Resolving]
  - Fatigue [Recovering/Resolving]
  - Drug interaction [Recovering/Resolving]
  - Loss of personal independence in daily activities [Recovering/Resolving]
  - Somnolence [Recovering/Resolving]
  - Drug level increased [Recovering/Resolving]
